FAERS Safety Report 4951309-4 (Version None)
Quarter: 2006Q1

REPORT INFORMATION
  Report Type: 
  Country: None (occurrence: None)
  Receive Date: 20060317
  Receipt Date: 20060306
  Transmission Date: 20060701
  Serious: Yes (Other)
  Sender: FDA-Public Use
  Company Number: 2006JP000479

PATIENT
  Age: 61 Year
  Sex: Female

DRUGS (13)
  1. FUNGUARD     (MICAFUNGIN) INJECTION [Suspect]
     Indication: BLOOD BETA-D-GLUCAN INCREASED
     Dosage: 300 MG, IV DRIP
     Route: 041
     Dates: start: 20060131
  2. MODACIN               (CEFTAZIDIME) [Suspect]
     Dosage: 2 G, IV DRIP
     Route: 041
     Dates: start: 20060215
  3. ISOTONIC SOLUTIONS [Concomitant]
  4. NITRAZEPAM [Concomitant]
  5. LASIX [Concomitant]
  6. LANSOPRAZOLE [Concomitant]
  7. MAGNESIUM OXIDE (MAGNESIUM OXIDE) [Concomitant]
  8. MEDROL [Concomitant]
  9. ADEROXAL (PYRIDOXAL PHOSPHATE) [Concomitant]
  10. ASPARA K (ASPARTATE POTASSIUM) [Concomitant]
  11. ISONIAZID [Concomitant]
  12. ITRACONAZOLE [Concomitant]
  13. PYDOXAL (PYRIDOXAL PHOSPHATE) [Concomitant]

REACTIONS (3)
  - INFUSION SITE EXTRAVASATION [None]
  - SKIN NECROSIS [None]
  - SKIN ULCER [None]
